FAERS Safety Report 8087662-5 (Version None)
Quarter: 2012Q1

REPORT INFORMATION
  Report Type: 
  Country: None (occurrence: None)
  Receive Date: 20120128
  Receipt Date: 20110419
  Transmission Date: 20120608
  Serious: No
  Sender: FDA-Public Use
  Company Number: US-ABBOTT-11P-163-0720950-00

PATIENT
  Age: 67 Year
  Sex: Female
  Weight: 72.64 kg

DRUGS (2)
  1. HUMIRA [Suspect]
     Indication: PSORIASIS
     Route: 058
     Dates: start: 20090101, end: 20110401
  2. UNKOWN HYPERTENSION MEDICATION [Concomitant]
     Indication: HYPERTENSION

REACTIONS (1)
  - HYPOTONIA [None]
